FAERS Safety Report 7323852-4 (Version None)
Quarter: 2011Q1

REPORT INFORMATION
  Report Type: 
  Country: None (occurrence: None)
  Receive Date: 20110301
  Receipt Date: 20110223
  Transmission Date: 20110831
  Serious: Yes (Hospitalization)
  Sender: FDA-Public Use
  Company Number: A0915069A

PATIENT
  Age: 63 Year
  Sex: Female

DRUGS (7)
  1. ADVAIR DISKUS 100/50 [Suspect]
     Indication: ASTHMA
     Dosage: 1PUFF TWICE PER DAY
     Route: 055
     Dates: start: 20030101
  2. LEVOTHYROXINE SODIUM [Concomitant]
  3. LASIX [Concomitant]
  4. ASPIRIN [Concomitant]
  5. VERAPAMIL [Concomitant]
  6. DIAZEPAM [Concomitant]
  7. PROPRANOLOL [Concomitant]

REACTIONS (4)
  - NAIL DISORDER [None]
  - FATIGUE [None]
  - DYSPNOEA [None]
  - ASTHMA [None]
